FAERS Safety Report 18590362 (Version 1)
Quarter: 2020Q4

REPORT INFORMATION
  Report Type: Spontaneous
  Country: US (occurrence: US)
  Receive Date: 20201207
  Receipt Date: 20201207
  Transmission Date: 20210114
  Serious: Yes (Death)
  Sender: FDA-Public Use
  Company Number: None

PATIENT
  Age: 83 Year
  Sex: Male

DRUGS (1)
  1. REVLIMID [Suspect]
     Active Substance: LENALIDOMIDE
     Indication: PLASMA CELL MYELOMA
     Dosage: ?          OTHER FREQUENCY:QD X21/28D;?
     Route: 048
     Dates: start: 202001

REACTIONS (10)
  - Pyrexia [None]
  - Neutropenia [None]
  - Hypoxia [None]
  - Disease progression [None]
  - Multiple organ dysfunction syndrome [None]
  - Mental status changes [None]
  - Lactic acidosis [None]
  - Streptococcal infection [None]
  - Acute kidney injury [None]
  - Blood culture positive [None]

NARRATIVE: CASE EVENT DATE: 20200215
